FAERS Safety Report 4638450-0 (Version None)
Quarter: 2005Q2

REPORT INFORMATION
  Report Type: 
  Country: None (occurrence: None)
  Receive Date: 20050418
  Receipt Date: 20050330
  Transmission Date: 20051028
  Serious: Yes (Hospitalization)
  Sender: FDA-Public Use
  Company Number: S05-FRA-01405-01

PATIENT
  Age: 47 Year
  Sex: Female

DRUGS (4)
  1. CITALOPRAM HYDROBROMIDE [Suspect]
     Dosage: UNK
     Route: 065
     Dates: start: 20041122, end: 20041129
  2. IKARAN (DIHYDROERGOTAMINE MESILATE) [Suspect]
     Dosage: UNK
     Route: 065
     Dates: end: 20041203
  3. SERMION (NICERGOLINE) [Suspect]
     Dosage: UNK
     Route: 065
     Dates: end: 20041203
  4. LESCOL [Suspect]
     Dosage: 20 MG QD PO
     Route: 048
     Dates: end: 20041203

REACTIONS (2)
  - AUTOIMMUNE HEPATITIS [None]
  - HEPATOTOXICITY [None]
